FAERS Safety Report 9443138 (Version 3)
Quarter: 2014Q1

REPORT INFORMATION
  Report Type: Spontaneous
  Country: US (occurrence: US)
  Receive Date: 20130806
  Receipt Date: 20140312
  Transmission Date: 20141002
  Serious: Yes (Hospitalization)
  Sender: FDA-Public Use
  Company Number: US-BAYER-2013-094769

PATIENT
  Age: 29 Year
  Sex: Female
  Weight: 81.63 kg

DRUGS (3)
  1. MIRENA [Suspect]
     Indication: CONTRACEPTION
     Dosage: 20 MCG/24HR, CONT
     Route: 015
     Dates: start: 20090921, end: 20120524
  2. ZOLOFT [Concomitant]
     Dosage: UNK
     Dates: start: 2003
  3. ZOFRAN [Concomitant]
     Indication: DEPRESSION
     Dosage: UNK
     Route: 048
     Dates: start: 2006

REACTIONS (8)
  - Uterine perforation [None]
  - Injury [None]
  - Pain [None]
  - Emotional distress [None]
  - Headache [None]
  - Abdominal pain upper [None]
  - Nausea [None]
  - Device issue [None]
